FAERS Safety Report 7509444-2 (Version None)
Quarter: 2011Q2

REPORT INFORMATION
  Report Type: 
  Country: None (occurrence: None)
  Receive Date: 20110527
  Receipt Date: 20110512
  Transmission Date: 20111010
  Serious: Yes (Hospitalization)
  Sender: FDA-Public Use
  Company Number: US-BAYER-2011-042411

PATIENT
  Age: 78 Year
  Sex: Female

DRUGS (10)
  1. ISOSORBIDE DINITRATE [Concomitant]
  2. LISINOPRIL [Concomitant]
  3. VITAMIN B [Concomitant]
  4. DRONEDARONE HCL [Suspect]
     Indication: ATRIAL FIBRILLATION
     Dosage: 400 MG, BID
     Route: 048
     Dates: start: 20101201
  5. COUMADIN [Suspect]
  6. PRILOSEC [Concomitant]
     Dosage: 40 MG, BID
     Dates: start: 20110401
  7. ASCORBIC ACID [Concomitant]
  8. ASPIRIN [Suspect]
     Dosage: DAILY DOSE 81 MG
     Route: 065
  9. SYNTHROID [Concomitant]
  10. FOLIC ACID [Concomitant]

REACTIONS (4)
  - HAEMOGLOBIN DECREASED [None]
  - ULCER HAEMORRHAGE [None]
  - FAECES DISCOLOURED [None]
  - DYSPNOEA [None]
